FAERS Safety Report 5383803-9 (Version None)
Quarter: 2007Q3

REPORT INFORMATION
  Report Type: 
  Country: None (occurrence: None)
  Receive Date: 20070706
  Receipt Date: 20070625
  Transmission Date: 20080115
  Serious: Yes (Other)
  Sender: FDA-Public Use
  Company Number: 2007325187

PATIENT
  Sex: Female
  Weight: 65.8 kg

DRUGS (1)
  1. BENADRYL [Suspect]
     Indication: HYPERSENSITIVITY
     Dosage: RECOMMENDED AMOUNT 4-6 HRS WHEN NEEDED, ORAL
     Route: 048
     Dates: start: 19930101, end: 20040101

REACTIONS (1)
  - MULTIPLE SYSTEM ATROPHY [None]
